FAERS Safety Report 4433154-1 (Version None)
Quarter: 2004Q3

REPORT INFORMATION
  Report Type: 
  Country: None (occurrence: None)
  Receive Date: 20040823
  Receipt Date: 20040809
  Transmission Date: 20050211
  Serious: Yes (Other)
  Sender: FDA-Public Use
  Company Number: 2004051692

PATIENT
  Sex: Female
  Weight: 53.5244 kg

DRUGS (4)
  1. NEURONTIN [Suspect]
     Indication: CONVULSION
     Dosage: 800 MG (400 MG, 2 IN 1 D), ORAL
     Route: 048
     Dates: end: 20040101
  2. CARBAMAZEPINE [Suspect]
     Indication: CONVULSION
     Dosage: ORAL
     Route: 048
     Dates: end: 20040501
  3. OXCARBAZEPINE (OXCARBAZEPINE) [Suspect]
     Indication: CONVULSION
     Dates: start: 20040101
  4. LEVETIRACETAM [Suspect]
     Indication: CONVULSION
     Dates: start: 20040101

REACTIONS (9)
  - ASTHENIA [None]
  - DEPRESSION [None]
  - FEELING ABNORMAL [None]
  - INTENTIONAL SELF-INJURY [None]
  - SOCIAL AVOIDANT BEHAVIOUR [None]
  - SUICIDAL IDEATION [None]
  - THERAPEUTIC RESPONSE DECREASED [None]
  - TREATMENT NONCOMPLIANCE [None]
  - WEIGHT DECREASED [None]
